FAERS Safety Report 4472835-0 (Version None)
Quarter: 2004Q4

REPORT INFORMATION
  Report Type: 
  Country: None (occurrence: None)
  Receive Date: 20041012
  Receipt Date: 20041012
  Transmission Date: 20050328
  Serious: Yes (Hospitalization, Other)
  Sender: FDA-Public Use
  Company Number: None

PATIENT
  Age: 97 Year
  Sex: Male

DRUGS (1)
  1. DIGOXIN [Suspect]

REACTIONS (4)
  - BRADYCARDIA [None]
  - NAUSEA [None]
  - THERAPEUTIC AGENT TOXICITY [None]
  - VOMITING [None]
